FAERS Safety Report 12189960 (Version 1)
Quarter: 2016Q1

REPORT INFORMATION
  Report Type: Spontaneous
  Country: US (occurrence: None)
  Receive Date: 20160317
  Receipt Date: 20160317
  Transmission Date: 20160526
  Serious: No
  Sender: FDA-Public Use
  Company Number: None

PATIENT
  Age: 67 Year
  Sex: Male

DRUGS (1)
  1. IMATINIB 400MG SUN PHARMACEUTICALS [Suspect]
     Active Substance: IMATINIB
     Indication: MYELOID LEUKAEMIA
     Route: 048
     Dates: start: 20160204, end: 20160304

REACTIONS (7)
  - Muscle spasms [None]
  - Headache [None]
  - Abdominal discomfort [None]
  - Back pain [None]
  - Joint swelling [None]
  - Paraesthesia [None]
  - Product substitution issue [None]
